FAERS Safety Report 23801095 (Version 1)
Quarter: 2024Q2

REPORT INFORMATION
  Report Type: Spontaneous
  Country: RO (occurrence: None)
  Receive Date: 20240430
  Receipt Date: 20240430
  Transmission Date: 20240715
  Serious: Yes (Other)
  Sender: FDA-Public Use
  Company Number: 2024A102555

PATIENT
  Age: 66 Year
  Sex: Male
  Weight: 84 kg

DRUGS (1)
  1. CALQUENCE [Suspect]
     Active Substance: ACALABRUTINIB
     Indication: Chronic lymphocytic leukaemia
     Route: 048
     Dates: start: 20230721, end: 20240402

REACTIONS (2)
  - Malignant neoplasm progression [Unknown]
  - Parathyroid tumour malignant [Recovered/Resolved]

NARRATIVE: CASE EVENT DATE: 20240301
